FAERS Safety Report 6286573-5 (Version None)
Quarter: 2009Q3

REPORT INFORMATION
  Report Type: 
  Country: None (occurrence: None)
  Receive Date: 20090728
  Receipt Date: 20090717
  Transmission Date: 20100115
  Serious: Yes (Other)
  Sender: FDA-Public Use
  Company Number: DE-BRISTOL-MYERS SQUIBB COMPANY-14710404

PATIENT
  Sex: Female
  Weight: 2 kg

DRUGS (1)
  1. ABILIFY [Suspect]
     Indication: SCHIZOAFFECTIVE DISORDER
     Dosage: 10MG10MAY-04DEC07;15MG(05DEC07-28JAN08;20MG(29JAN-04MAR;15(05MAR-28APR08;10(29APR-28SEP08;15(29SEP09
     Route: 048
     Dates: start: 20070510

REACTIONS (2)
  - INGUINAL HERNIA [None]
  - PREMATURE BABY [None]
